FAERS Safety Report 9897281 (Version 1)
Quarter: 2014Q1

REPORT INFORMATION
  Report Type: Spontaneous
  Country: FR (occurrence: FR)
  Receive Date: 20140214
  Receipt Date: 20140214
  Transmission Date: 20141002
  Serious: Yes (Hospitalization)
  Sender: FDA-Public Use
  Company Number: FR-ASTRAZENECA-2014SE09704

PATIENT
  Age: 28016 Day
  Sex: Male
  Weight: 70 kg

DRUGS (8)
  1. HYTACAND [Suspect]
     Indication: HYPERTENSION
     Route: 048
  2. PRADAXA [Suspect]
     Indication: ARRHYTHMIA
     Route: 048
     Dates: end: 201401
  3. BURINEX [Suspect]
     Indication: HYPERTENSION
     Route: 048
     Dates: end: 201401
  4. ALFUZOSINE [Suspect]
     Indication: PROSTATISM
     Route: 048
  5. SODIC PRAVASTATINE [Concomitant]
     Indication: DYSLIPIDAEMIA
     Route: 048
  6. ALLOPURINOL [Concomitant]
     Indication: HYPERURICAEMIA
     Route: 048
  7. HEMIGOXINE NATIVELLE [Concomitant]
     Indication: ARRHYTHMIA
     Route: 048
  8. POTASSIUM [Concomitant]
     Indication: HYPOKALAEMIA
     Route: 048

REACTIONS (6)
  - Orthostatic hypotension [Recovering/Resolving]
  - Traumatic haemorrhage [Recovering/Resolving]
  - Fall [Recovered/Resolved]
  - Facial bones fracture [Unknown]
  - Skin wound [Unknown]
  - Haemoglobin decreased [Unknown]
